FAERS Safety Report 23743328 (Version 1)
Quarter: 2024Q2

REPORT INFORMATION
  Report Type: Spontaneous
  Country: US (occurrence: US)
  Receive Date: 20240415
  Receipt Date: 20240415
  Transmission Date: 20240716
  Serious: Yes (Other)
  Sender: FDA-Public Use
  Company Number: US-BAYER-2024A054138

PATIENT
  Age: 38 Year
  Sex: Male

DRUGS (2)
  1. RIVAROXABAN [Interacting]
     Active Substance: RIVAROXABAN
  2. ASPIRIN [Interacting]
     Active Substance: ASPIRIN

REACTIONS (2)
  - Haemorrhage [None]
  - Drug interaction [None]
